FAERS Safety Report 10276662 (Version 1)
Quarter: 2014Q3

REPORT INFORMATION
  Report Type: Spontaneous
  Country: CA (occurrence: None)
  Receive Date: 20140701
  Receipt Date: 20140701
  Transmission Date: 20150326
  Serious: Yes (Hospitalization, Other)
  Sender: FDA-Public Use
  Company Number: 20140351

PATIENT
  Age: 49 Year
  Sex: Female

DRUGS (2)
  1. VENOFER [Suspect]
     Active Substance: IRON SUCROSE
     Indication: DERMATOMYOSITIS
     Route: 042
     Dates: start: 20140526, end: 20140526
  2. VENOFER [Suspect]
     Active Substance: IRON SUCROSE
     Indication: ANAEMIA
     Route: 042
     Dates: start: 20140526, end: 20140526

REACTIONS (7)
  - Joint swelling [None]
  - Wrong technique in drug usage process [None]
  - Nodule [None]
  - Arthralgia [None]
  - Oedema peripheral [None]
  - Chest pain [None]
  - Pulmonary embolism [None]

NARRATIVE: CASE EVENT DATE: 20140526
